FAERS Safety Report 24755500 (Version 1)
Quarter: 2024Q4

REPORT INFORMATION
  Report Type: Spontaneous
  Country: NO (occurrence: NO)
  Receive Date: 20241219
  Receipt Date: 20241219
  Transmission Date: 20250115
  Serious: Yes (Life-Threatening, Hospitalization)
  Sender: EISAI
  Company Number: None

PATIENT
  Age: 87 Year
  Sex: Female

DRUGS (11)
  1. ARICEPT [Suspect]
     Active Substance: DONEPEZIL HYDROCHLORIDE
     Indication: Dementia Alzheimer^s type
     Route: 048
     Dates: start: 202310, end: 20241201
  2. LORATADINE [Interacting]
     Active Substance: LORATADINE
     Indication: Hypersensitivity
     Route: 048
     Dates: end: 2024
  3. OMEGA 3 + VITAMIN D [Concomitant]
     Indication: Product used for unknown indication
     Dosage: TWO CAPSULES MORNING.??DOSE AND FREQUENCY WERE UNKNOWN.
     Dates: end: 20241201
  4. FOLSYRE ORIFARM [Concomitant]
     Indication: Folate deficiency
  5. PULMICORT TURBUHALER [Concomitant]
     Active Substance: BUDESONIDE
     Indication: Product used for unknown indication
  6. VITAMIN B12 DEPOT ORIFARM [Concomitant]
     Indication: Vitamin B complex deficiency
     Dosage: 1 INJECTION EVERY 90 DAYS.
  7. UREA [Concomitant]
     Active Substance: UREA
     Indication: Product used for unknown indication
     Dosage: TO BE APPLIED SEVERAL TIMES DAILY
  8. FUCIDIN-HYDROCORTISON [Concomitant]
     Indication: Wound infection
     Dosage: USED WHEN NEEDED TWO TIMES DAILY ON INFECTED WOUNDS,
  9. MOMETASONE FUROATE [Concomitant]
     Active Substance: MOMETASONE FUROATE
     Indication: Product used for unknown indication
     Dosage: USED WHEN NEEDED 1 TIME DAILY (AT NIGHT) ON ITCHING SPOTS.
  10. SYNALAR MED CHINOFORM [Concomitant]
     Indication: Eczema infected
     Dosage: USED WHEN NEEDED EVENING ON ITCHY WOUNDS.
  11. ALBUTEROL SULFATE [Concomitant]
     Active Substance: ALBUTEROL SULFATE
     Indication: Asthma
     Dosage: USE AS NEEDED, 1-2 INHALATIONS UP TO 4 TIMES DAILY.

REACTIONS (8)
  - Syncope [Recovered/Resolved]
  - Vomiting [Recovered/Resolved]
  - Loss of consciousness [Recovered/Resolved]
  - Pallor [Recovered/Resolved]
  - Agonal respiration [Recovered/Resolved]
  - Bradycardia [Recovered/Resolved]
  - Orthostatic hypotension [Recovered/Resolved]
  - Drug interaction [Recovered/Resolved]

NARRATIVE: CASE EVENT DATE: 20241130
